FAERS Safety Report 24327024 (Version 1)
Quarter: 2024Q3

REPORT INFORMATION
  Report Type: Spontaneous
  Country: US (occurrence: US)
  Receive Date: 20240917
  Receipt Date: 20240917
  Transmission Date: 20241016
  Serious: No
  Sender: PADAGIS
  Company Number: US-PADAGIS-2024PAD01463

PATIENT

DRUGS (1)
  1. BETAMETHASONE DIPROPIONATE USP, 0.05% [Suspect]
     Active Substance: BETAMETHASONE DIPROPIONATE
     Indication: Product used for unknown indication
     Dosage: UNK
     Route: 065

REACTIONS (1)
  - Drug ineffective [Unknown]
